FAERS Safety Report 23405330 (Version 1)
Quarter: 2024Q1

REPORT INFORMATION
  Report Type: Spontaneous
  Country: CN (occurrence: CN)
  Receive Date: 20240116
  Receipt Date: 20240116
  Transmission Date: 20240409
  Serious: Yes (Death, Life-Threatening, Other)
  Sender: FDA-Public Use
  Company Number: CN-PFIZER INC-PV202400003203

PATIENT
  Age: 41 Year
  Sex: Male

DRUGS (15)
  1. CRIZOTINIB [Suspect]
     Active Substance: CRIZOTINIB
     Indication: Adenocarcinoma gastric
     Dosage: 250 MG, 2X/DAY (CYCLIC)
     Route: 048
     Dates: start: 202104
  2. OXALIPLATIN [Suspect]
     Active Substance: OXALIPLATIN
     Indication: Adenocarcinoma gastric
     Dosage: 130 MG/M2, CYCLIC (GTT D1) (EVERY 3 WKS, X2)
     Route: 042
     Dates: start: 202007
  3. CAPECITABINE [Suspect]
     Active Substance: CAPECITABINE
     Indication: Adenocarcinoma gastric
     Dosage: 1000 MG/M2, 2X/DAY (D1-14) (CYCLIC) (EVERY 3 WKS, X2)
     Route: 048
     Dates: start: 202007
  4. APATINIB [Suspect]
     Active Substance: APATINIB
     Indication: Adenocarcinoma gastric
     Dosage: UNK, CYCLIC
  5. PACLITAXEL [Suspect]
     Active Substance: PACLITAXEL
     Indication: Adenocarcinoma gastric
     Dosage: 125 MG/M2, CYCLIC (GTT D1) (EVERY 3 WKS, X5)
     Route: 042
     Dates: start: 202012
  6. PACLITAXEL [Suspect]
     Active Substance: PACLITAXEL
     Dosage: 125 MG/M2, CYCLIC (GTT D1) (EVERY 3 WKS, X1)
     Route: 042
     Dates: start: 202103
  7. PACLITAXEL [Suspect]
     Active Substance: PACLITAXEL
     Dosage: 125 MG/M2, CYCLIC (GTT D1) (EVERY 3 WKS, X3)
     Route: 042
     Dates: start: 202110
  8. PEMBROLIZUMAB [Suspect]
     Active Substance: PEMBROLIZUMAB
     Indication: Adenocarcinoma gastric
     Dosage: 200 MG, CYCLIC (GTT D1) (EVERY 3 WEEK, X5)
     Route: 042
     Dates: start: 202012
  9. PEMBROLIZUMAB [Suspect]
     Active Substance: PEMBROLIZUMAB
     Dosage: 200 MG, CYCLIC (GTT D1) (EVERY 3 WEEK, X1)
     Route: 042
     Dates: start: 202103
  10. LENVATINIB [Suspect]
     Active Substance: LENVATINIB
     Indication: Adenocarcinoma gastric
     Dosage: 8 MG, 1X/DAY (CYCLIC) (EVERY 3 WEEK, X1)
     Route: 048
     Dates: start: 202103
  11. LENVATINIB [Suspect]
     Active Substance: LENVATINIB
     Dosage: 8 MG, 1X/DAY
     Route: 048
     Dates: start: 202104
  12. LENVATINIB [Suspect]
     Active Substance: LENVATINIB
     Dosage: 8 MG, 1X/DAY
     Route: 048
     Dates: start: 202106
  13. CAPMATINIB [Suspect]
     Active Substance: CAPMATINIB
     Indication: Adenocarcinoma gastric
     Dosage: 400 MG, 2X/DAY
     Route: 048
     Dates: start: 202106
  14. CAPMATINIB [Suspect]
     Active Substance: CAPMATINIB
     Dosage: 200 MG, 2X/DAY (EVERY 3 WEEK, X3)
     Route: 048
     Dates: start: 202110
  15. TRASTUZUMAB [Suspect]
     Active Substance: TRASTUZUMAB
     Indication: Adenocarcinoma gastric
     Dosage: 440 MG, CYCLIC (GTT D1) (EVERY 3 WEEK, X3)
     Route: 042
     Dates: start: 202110

REACTIONS (2)
  - Drug ineffective for unapproved indication [Fatal]
  - Off label use [Fatal]
